FAERS Safety Report 25278202 (Version 2)
Quarter: 2025Q2

REPORT INFORMATION
  Report Type: Spontaneous
  Country: US (occurrence: US)
  Receive Date: 20250507
  Receipt Date: 20250606
  Transmission Date: 20250717
  Serious: No
  Sender: PFIZER
  Company Number: US-PFIZER INC-202500093848

PATIENT
  Age: 58 Year
  Sex: Female

DRUGS (3)
  1. TUKYSA [Suspect]
     Active Substance: TUCATINIB
     Indication: Breast cancer female
     Dosage: TAKE 2 TABLETS (300 MG) BY MOUTH TWICH DAILY
     Route: 048
     Dates: start: 20250424
  2. TRASTUZUMAB [Suspect]
     Active Substance: TRASTUZUMAB
     Indication: Breast cancer female
     Dates: start: 20250424
  3. XELODA [Suspect]
     Active Substance: CAPECITABINE
     Indication: Breast cancer female
     Dates: start: 20250424

REACTIONS (1)
  - Constipation [Unknown]

NARRATIVE: CASE EVENT DATE: 20250401
